FAERS Safety Report 7315457-6 (Version None)
Quarter: 2011Q1

REPORT INFORMATION
  Report Type: 
  Country: None (occurrence: None)
  Receive Date: 20110225
  Receipt Date: 20110214
  Transmission Date: 20110831
  Serious: Yes (Hospitalization, Other)
  Sender: FDA-Public Use
  Company Number: US-ELI_LILLY_AND_COMPANY-US201002003365

PATIENT
  Sex: Female
  Weight: 56.689 kg

DRUGS (3)
  1. GLUCOPHAGE [Concomitant]
     Indication: DIABETES MELLITUS
  2. BYETTA [Suspect]
     Dates: end: 20060101
  3. BYETTA [Suspect]
     Dosage: UNK, UNK
     Dates: start: 20070101

REACTIONS (4)
  - URTICARIA [None]
  - PANCREATITIS CHRONIC [None]
  - PANCREATIC NEOPLASM [None]
  - RECTAL CANCER STAGE II [None]
